FAERS Safety Report 6312964-X (Version None)
Quarter: 2009Q3

REPORT INFORMATION
  Report Type: 
  Country: None (occurrence: None)
  Receive Date: 20090814
  Receipt Date: 20090814
  Transmission Date: 20100115
  Serious: Yes (Hospitalization)
  Sender: FDA-Public Use
  Company Number: None

PATIENT
  Sex: Male
  Weight: 83.9154 kg

DRUGS (1)
  1. LISINOPRIL AND HYDROCHLOROTHIAZIDE [Suspect]
     Dosage: 1 PER DAY PO
     Route: 048
     Dates: start: 20081101, end: 20090813

REACTIONS (5)
  - CONCUSSION [None]
  - LACERATION [None]
  - MUSCLE SPASMS [None]
  - RASH [None]
  - SYNCOPE [None]
